FAERS Safety Report 5724119-8 (Version None)
Quarter: 2008Q2

REPORT INFORMATION
  Report Type: 
  Country: None (occurrence: None)
  Receive Date: 20080430
  Receipt Date: 20080422
  Transmission Date: 20081010
  Serious: Yes (Hospitalization)
  Sender: FDA-Public Use
  Company Number: FR-BOEHRINGER INGELHEIM GMBH, GERMANY-2008-FF-00329FF

PATIENT
  Sex: Male

DRUGS (5)
  1. MECIR LP 0.4 [Suspect]
     Indication: PROSTATIC ADENOMA
     Route: 048
     Dates: start: 20070510, end: 20070515
  2. DIGOXIN [Concomitant]
  3. CORVASAL [Concomitant]
  4. DISCOTRINE [Concomitant]
  5. SYMBICORT [Concomitant]

REACTIONS (2)
  - CONFUSIONAL STATE [None]
  - FALL [None]
